FAERS Safety Report 14601075 (Version 8)
Quarter: 2020Q1

REPORT INFORMATION
  Report Type: Report from Study
  Country: US (occurrence: US)
  Receive Date: 20180305
  Receipt Date: 20200318
  Transmission Date: 20200409
  Serious: Yes (Hospitalization)
  Sender: FDA-Public Use
  Company Number: US-ACTELION-A-NJ2018-166694

PATIENT
  Sex: Female
  Weight: 63.49 kg

DRUGS (8)
  1. ELIQUIS [Concomitant]
     Active Substance: APIXABAN
  2. REVATIO [Concomitant]
     Active Substance: SILDENAFIL CITRATE
  3. AMLODIPINE [Concomitant]
     Active Substance: AMLODIPINE BESYLATE
  4. DILTIAZEM. [Concomitant]
     Active Substance: DILTIAZEM
     Dosage: 30 MG, TID
  5. OPSUMIT [Suspect]
     Active Substance: MACITENTAN
     Indication: PULMONARY HYPERTENSION
     Dosage: 10 MG, QD
     Route: 048
     Dates: start: 20190121
  6. REMODULIN [Concomitant]
     Active Substance: TREPROSTINIL
  7. OXYGEN. [Concomitant]
     Active Substance: OXYGEN
     Dosage: 2 L/MIN, AT NIGHT AND PRN
  8. LETAIRIS [Concomitant]
     Active Substance: AMBRISENTAN

REACTIONS (13)
  - Unevaluable event [Unknown]
  - Chest discomfort [Unknown]
  - Pneumonia [Unknown]
  - Syncope [Unknown]
  - Viral infection [Unknown]
  - Cardiac failure congestive [Unknown]
  - Cardioversion [Unknown]
  - Dyspnoea exertional [Unknown]
  - Dyspnoea [Unknown]
  - Oxygen consumption [Unknown]
  - Urinary tract infection [Unknown]
  - Heart rate irregular [Unknown]
  - Breath sounds abnormal [Unknown]
